FAERS Safety Report 6187511-6 (Version None)
Quarter: 2009Q2

REPORT INFORMATION
  Report Type: 
  Country: None (occurrence: None)
  Receive Date: 20090508
  Receipt Date: 20090430
  Transmission Date: 20091009
  Serious: Yes (Other)
  Sender: FDA-Public Use
  Company Number: 2009SP009451

PATIENT
  Age: 62 Year
  Sex: Male

DRUGS (4)
  1. TEMODAL [Suspect]
     Indication: GLIOBLASTOMA
     Dosage: ; PO
     Route: 048
     Dates: start: 20090101
  2. TEMODAL [Suspect]
     Indication: GLIOBLASTOMA
     Dosage: ; PO
     Route: 048
     Dates: start: 20090101
  3. TEMODAL [Suspect]
     Indication: GLIOBLASTOMA
     Dosage: ; PO
     Route: 048
     Dates: start: 20090201
  4. DEXAMETHASONE 4MG TAB [Concomitant]

REACTIONS (3)
  - CHILLS [None]
  - HYPERTENSION [None]
  - RESPIRATORY TRACT INFECTION [None]
